FAERS Safety Report 5599865-X (Version None)
Quarter: 2008Q1

REPORT INFORMATION
  Report Type: 
  Country: None (occurrence: None)
  Receive Date: 20080117
  Receipt Date: 20080105
  Transmission Date: 20080703
  Serious: Yes (Life-Threatening, Hospitalization, Other)
  Sender: FDA-Public Use
  Company Number: ADE2008-0103

PATIENT
  Age: 14 Year
  Sex: Female
  Weight: 40 kg

DRUGS (3)
  1. ATENOLOL [Suspect]
     Dosage: PO
     Route: 048
  2. METFORMIN HYDROCHLORIDE [Suspect]
     Dosage: PO
     Route: 048
  3. DICLOFENAC 75MG TABLETS [Suspect]
     Dosage: PO
     Route: 048

REACTIONS (8)
  - BLOOD GLUCOSE INCREASED [None]
  - CONVULSION [None]
  - DEPRESSED LEVEL OF CONSCIOUSNESS [None]
  - HYPOTENSION [None]
  - METABOLIC ACIDOSIS [None]
  - RESPIRATION ABNORMAL [None]
  - SUICIDE ATTEMPT [None]
  - UNEVALUABLE EVENT [None]
